FAERS Safety Report 10072397 (Version 1)
Quarter: 2014Q2

REPORT INFORMATION
  Report Type: Spontaneous
  Country: FR (occurrence: FR)
  Receive Date: 20140411
  Receipt Date: 20140411
  Transmission Date: 20141212
  Serious: Yes (Hospitalization)
  Sender: FDA-Public Use
  Company Number: FR-ELI_LILLY_AND_COMPANY-FR201404001449

PATIENT
  Age: 44 Year
  Sex: Female

DRUGS (3)
  1. OPTRUMA [Suspect]
     Indication: OSTEOPOROTIC FRACTURE
     Dosage: 60 MG, QD
     Route: 048
     Dates: start: 200708, end: 200710
  2. PROTELOS [Suspect]
     Indication: OSTEOPOROTIC FRACTURE
     Dosage: 2 G, QD
     Route: 048
     Dates: start: 200608, end: 200708
  3. MINIPHASE [Suspect]
     Indication: ORAL CONTRACEPTION
     Dosage: 1 DF, QD
     Route: 048
     Dates: end: 200710

REACTIONS (3)
  - Mesenteric panniculitis [Unknown]
  - Haemangioma [Unknown]
  - Portal vein thrombosis [Recovered/Resolved]
